FAERS Safety Report 6895051-1 (Version None)
Quarter: 2010Q3

REPORT INFORMATION
  Report Type: 
  Country: None (occurrence: None)
  Receive Date: 20100802
  Receipt Date: 20100729
  Transmission Date: 20110219
  Serious: Yes (Other)
  Sender: FDA-Public Use
  Company Number: US-WYE-H14474010

PATIENT
  Sex: Male
  Weight: 94.89 kg

DRUGS (5)
  1. ROBITUSSIN NIGHT TIME COUGH AND COLD [Suspect]
     Indication: NASOPHARYNGITIS
     Dosage: THREE OR FOUR TEASPOONS
     Route: 048
     Dates: start: 20100329, end: 20100329
  2. ROBITUSSIN NIGHT TIME COUGH AND COLD [Suspect]
     Indication: COUGH
  3. ROBITUSSIN NIGHT TIME COUGH AND COLD [Suspect]
     Indication: PARANASAL SINUS HYPERSECRETION
  4. CLARITIN [Concomitant]
     Dosage: 10 MG AS NEEDED PER INSTRUCTION
     Route: 048
     Dates: start: 20100301
  5. CEPACOL [Concomitant]

REACTIONS (3)
  - DRUG HYPERSENSITIVITY [None]
  - LIP SWELLING [None]
  - URTICARIA [None]
